FAERS Safety Report 13088020 (Version 2)
Quarter: 2017Q1

REPORT INFORMATION
  Report Type: Spontaneous
  Country: US (occurrence: US)
  Receive Date: 20170105
  Receipt Date: 20170112
  Transmission Date: 20170428
  Serious: Yes (Hospitalization)
  Sender: FDA-Public Use
  Company Number: US-LUNDBECK-DKLU2024592

PATIENT
  Sex: Female

DRUGS (1)
  1. SABRIL [Suspect]
     Active Substance: VIGABATRIN
     Indication: PRODUCT USED FOR UNKNOWN INDICATION
     Route: 065
     Dates: start: 20160722

REACTIONS (1)
  - Respiratory tract infection [Unknown]
